FAERS Safety Report 4786760-9 (Version None)
Quarter: 2005Q3

REPORT INFORMATION
  Report Type: 
  Country: None (occurrence: None)
  Receive Date: 20050930
  Receipt Date: 20050914
  Transmission Date: 20060218
  Serious: Yes (Death)
  Sender: FDA-Public Use
  Company Number: DSA_27163_2005

PATIENT
  Age: 71 Year
  Sex: Female

DRUGS (3)
  1. LORAZEPAM [Suspect]
     Dosage: DF ONCE PO
     Route: 048
  2. WHISKEY [Suspect]
     Dosage: DF ONCE PO
     Route: 048
  3. LORAZEPAM [Suspect]
     Dosage: DF QHS PO
     Route: 048

REACTIONS (6)
  - COMPLETED SUICIDE [None]
  - LOSS OF CONSCIOUSNESS [None]
  - MULTIPLE DRUG OVERDOSE [None]
  - RESPIRATORY ARREST [None]
  - SELF-MEDICATION [None]
  - SUICIDAL IDEATION [None]
